FAERS Safety Report 9113302 (Version 1)
Quarter: 2013Q1

REPORT INFORMATION
  Report Type: Spontaneous
  Country: CN (occurrence: CN)
  Receive Date: 20130211
  Receipt Date: 20130211
  Transmission Date: 20140127
  Serious: Yes (Other)
  Sender: FDA-Public Use
  Company Number: CN-ASTRAZENECA-2013SE07585

PATIENT
  Sex: Male

DRUGS (2)
  1. CRESTOR [Suspect]
     Route: 048
     Dates: start: 201301, end: 201301
  2. CRESTOR [Suspect]
     Route: 048
     Dates: start: 201301

REACTIONS (2)
  - Gamma-glutamyltransferase increased [Unknown]
  - Myalgia [Unknown]
